FAERS Safety Report 15589681 (Version 1)
Quarter: 2018Q4

REPORT INFORMATION
  Report Type: Report from Study
  Country: JP (occurrence: JP)
  Receive Date: 20181106
  Receipt Date: 20181106
  Transmission Date: 20190205
  Serious: Yes (Other)
  Sender: FDA-Public Use
  Company Number: JP-TEVA-2018-JP-972099

PATIENT
  Age: 73 Year
  Sex: Male

DRUGS (4)
  1. PACLITAXEL. [Concomitant]
     Active Substance: PACLITAXEL
     Dosage: DURING THE STAGING LAPAROSCOPY
     Route: 033
  2. CISPLATIN. [Suspect]
     Active Substance: CISPLATIN
     Indication: GASTRIC CANCER
     Dosage: 21-DAY CYCLE; ADMINISTERED OVER 1 HOURS ON DAYS 1 AND 8
     Route: 041
  3. TS-1 [Concomitant]
     Active Substance: GIMERACIL\OTERACIL\TEGAFUR
     Indication: GASTRIC CANCER
     Dosage: ADMINISTERED FOR 14 DAYS FOLLOWED BY 7 DAYS OF REST.
     Route: 048
  4. PACLITAXEL. [Concomitant]
     Active Substance: PACLITAXEL
     Indication: GASTRIC CANCER
     Dosage: 21-DAY CUCLE; ADMINISTERED OVER 1 HOURS ON DAYS 1 AND 8
     Route: 042

REACTIONS (1)
  - Drug hypersensitivity [Unknown]
